FAERS Safety Report 12626720 (Version 1)
Quarter: 2016Q3

REPORT INFORMATION
  Report Type: Report from Study
  Country: CA (occurrence: CA)
  Receive Date: 20160805
  Receipt Date: 20160805
  Transmission Date: 20161109
  Serious: Yes (Death, Other)
  Sender: FDA-Public Use
  Company Number: PHHY2015CA141911

PATIENT
  Age: 61 Year
  Sex: Female

DRUGS (8)
  1. SANDOSTATIN [Suspect]
     Active Substance: OCTREOTIDE ACETATE
     Indication: SMALL CELL LUNG CANCER
     Dosage: TID
     Route: 058
     Dates: start: 20151010, end: 20151026
  2. SANDOSTATIN LAR DEPOT [Suspect]
     Active Substance: OCTREOTIDE ACETATE
     Indication: SMALL CELL LUNG CANCER
     Dosage: 20 MG, QMO (EVERY 4 WEEKS)
     Route: 030
     Dates: start: 20151030, end: 20160707
  3. INFUFER [Concomitant]
     Indication: PRODUCT USED FOR UNKNOWN INDICATION
     Dosage: QW3 (3 TIMES/WEEK)
     Route: 030
  4. IRON [Concomitant]
     Active Substance: IRON
     Indication: IRON DEFICIENCY ANAEMIA
     Dosage: QW3 (3 TIMES PER WEEK)
     Route: 065
  5. SANDOSTATIN [Suspect]
     Active Substance: OCTREOTIDE ACETATE
     Indication: ANGIODYSPLASIA
  6. SANDOSTATIN LAR DEPOT [Suspect]
     Active Substance: OCTREOTIDE ACETATE
     Indication: ANGIODYSPLASIA
  7. SANDOSTATIN LAR DEPOT [Suspect]
     Active Substance: OCTREOTIDE ACETATE
     Indication: IRON DEFICIENCY ANAEMIA
  8. SANDOSTATIN [Suspect]
     Active Substance: OCTREOTIDE ACETATE
     Indication: IRON DEFICIENCY ANAEMIA

REACTIONS (10)
  - White blood cell count decreased [Unknown]
  - Injection site pain [Unknown]
  - Blood pressure increased [Unknown]
  - Product use issue [Unknown]
  - Body temperature decreased [Unknown]
  - Oral candidiasis [Unknown]
  - Death [Fatal]
  - Blood pressure systolic increased [Unknown]
  - Autonomic nervous system imbalance [Unknown]
  - Injection site induration [Unknown]

NARRATIVE: CASE EVENT DATE: 20151010
